APPROVED DRUG PRODUCT: LANSOPRAZOLE
Active Ingredient: LANSOPRAZOLE
Strength: 15MG
Dosage Form/Route: CAPSULE, DELAYED REL PELLETS;ORAL
Application: A207157 | Product #001
Applicant: LANNETT CO INC
Approved: Sep 29, 2017 | RLD: No | RS: No | Type: DISCN